FAERS Safety Report 20643944 (Version 3)
Quarter: 2022Q3

REPORT INFORMATION
  Report Type: Report from Study
  Country: US (occurrence: US)
  Receive Date: 20220328
  Receipt Date: 20220908
  Transmission Date: 20221027
  Serious: Yes (Other)
  Sender: FDA-Public Use
  Company Number: US-ALLERGAN-2133916US

PATIENT
  Sex: Female

DRUGS (4)
  1. BIMATOPROST [Suspect]
     Active Substance: BIMATOPROST
     Indication: Open angle glaucoma
     Dosage: 10 ?G, SINGLE
     Route: 031
     Dates: start: 20210826, end: 20210826
  2. BIMATOPROST [Suspect]
     Active Substance: BIMATOPROST
     Dosage: 10 ?G, SINGLE
     Route: 031
     Dates: start: 20210728, end: 20211117
  3. REFRESH TEARS [Concomitant]
     Active Substance: CARBOXYMETHYLCELLULOSE SODIUM
     Indication: Dry eye
     Dosage: 1 GTT, TID
     Route: 047
     Dates: start: 2019, end: 20210908
  4. AVASTIN [Concomitant]
     Active Substance: BEVACIZUMAB
     Indication: Neovascular age-related macular degeneration
     Dosage: 25 MG/ML EVERY 6  WEEKS
     Route: 031
     Dates: start: 2016

REACTIONS (3)
  - Punctate keratitis [Not Recovered/Not Resolved]
  - Intraocular pressure increased [Recovered/Resolved]
  - Punctate keratitis [Not Recovered/Not Resolved]

NARRATIVE: CASE EVENT DATE: 20210827
